FAERS Safety Report 16024607 (Version 1)
Quarter: 2019Q1

REPORT INFORMATION
  Report Type: Spontaneous
  Country: US (occurrence: US)
  Receive Date: 20190301
  Receipt Date: 20190301
  Transmission Date: 20190418
  Serious: No
  Sender: FDA-Public Use
  Company Number: US-BAUSCH-BL-2019-004799

PATIENT
  Age: 70 Year
  Sex: Female
  Weight: 49.49 kg

DRUGS (1)
  1. LUMIFY [Suspect]
     Active Substance: BRIMONIDINE TARTRATE
     Indication: OCULAR HYPERAEMIA
     Route: 047
     Dates: start: 20190204, end: 20190204

REACTIONS (3)
  - Condition aggravated [Recovering/Resolving]
  - Ocular hyperaemia [Recovering/Resolving]
  - Drug ineffective [Unknown]

NARRATIVE: CASE EVENT DATE: 20190204
